FAERS Safety Report 4392923-7 (Version None)
Quarter: 2004Q3

REPORT INFORMATION
  Report Type: 
  Country: None (occurrence: None)
  Receive Date: 20040702
  Receipt Date: 20040419
  Transmission Date: 20050211
  Serious: Yes (Other)
  Sender: FDA-Public Use
  Company Number: 2004UW07811

PATIENT
  Age: 64 Year
  Sex: Male
  Weight: 70.3075 kg

DRUGS (5)
  1. CRESTOR [Suspect]
     Indication: BLOOD CHOLESTEROL INCREASED
     Dosage: 10 MG QD PO
     Route: 048
     Dates: start: 20040401
  2. ASPIRIN [Concomitant]
  3. MULTI-VITAMINS [Concomitant]
  4. OMEGA 3 [Concomitant]
  5. FOLIC ACID [Concomitant]

REACTIONS (2)
  - CHROMATURIA [None]
  - INFLUENZA LIKE ILLNESS [None]
